FAERS Safety Report 21582450 (Version 1)
Quarter: 2022Q4

REPORT INFORMATION
  Report Type: Spontaneous
  Country: US (occurrence: US)
  Receive Date: 20221111
  Receipt Date: 20221111
  Transmission Date: 20230112
  Serious: No
  Sender: FDA-Public Use
  Company Number: US-PFIZER INC-202201290108

PATIENT
  Age: 54 Year
  Sex: Female

DRUGS (14)
  1. IBRANCE [Suspect]
     Active Substance: PALBOCICLIB
     Dosage: UNK
  2. IBRANCE [Suspect]
     Active Substance: PALBOCICLIB
     Dosage: ONCE DAILY FOR 21 DAYS AND THEN 7 DAYS OFF
     Route: 048
  3. NITROFURANTOIN [Concomitant]
     Active Substance: NITROFURANTOIN
  4. FASLODEX [Concomitant]
     Active Substance: FULVESTRANT
  5. ACETAMINOPHEN\HYDROCODONE [Concomitant]
     Active Substance: ACETAMINOPHEN\HYDROCODONE
  6. HYDROXYZINE [Concomitant]
     Active Substance: HYDROXYZINE HYDROCHLORIDE
  7. METHOCARBAMOL [Concomitant]
     Active Substance: METHOCARBAMOL
  8. CEPHALEXIN [Concomitant]
     Active Substance: CEPHALEXIN
  9. DIAZEPAM [Concomitant]
     Active Substance: DIAZEPAM
  10. LUNESTA [Concomitant]
     Active Substance: ESZOPICLONE
  11. ONDANSETRON [Concomitant]
     Active Substance: ONDANSETRON
  12. CIPROFLOXACIN [Concomitant]
     Active Substance: CIPROFLOXACIN
  13. ZOLEDRONIC ACID [Concomitant]
     Active Substance: ZOLEDRONIC ACID
  14. VITAMIN D3 [Concomitant]
     Active Substance: CHOLECALCIFEROL

REACTIONS (3)
  - Dyspepsia [Unknown]
  - Urinary tract infection [Unknown]
  - White blood cell count decreased [Unknown]
